FAERS Safety Report 7594531-3 (Version None)
Quarter: 2011Q2

REPORT INFORMATION
  Report Type: 
  Country: None (occurrence: None)
  Receive Date: 20110628
  Receipt Date: 20110615
  Transmission Date: 20111010
  Serious: Yes (Death)
  Sender: FDA-Public Use
  Company Number: 2011-2008

PATIENT
  Age: 76 Year
  Sex: Female
  Weight: 44 kg

DRUGS (6)
  1. AVINZA OPIOID (MORPHINE SULFATE) [Concomitant]
  2. ANTIDEPRESSANTS (ANTIDEPRESSANTS) [Concomitant]
  3. ANTIHYPERTENSIVE (ANTIHYPERTENSIVES) [Concomitant]
  4. LIPID LOWERING (CHOLESTEROL- AND TRIGLYCERIDE REDUCERS) [Concomitant]
  5. THYROID HORMONE (THYROID THERAPY) [Concomitant]
  6. SOMATULINE DEPOT [Suspect]
     Indication: ACROMEGALY
     Dosage: 60MG (60 MG, 1 IN 28 D)
     Dates: start: 20110311

REACTIONS (8)
  - FALL [None]
  - BLOOD POTASSIUM INCREASED [None]
  - MENINGIOMA [None]
  - BLOOD CREATININE INCREASED [None]
  - CEREBRAL ISCHAEMIA [None]
  - CEREBRAL CALCIFICATION [None]
  - LOSS OF CONSCIOUSNESS [None]
  - CARDIAC ARREST [None]
